FAERS Safety Report 4394521-8 (Version None)
Quarter: 2004Q3

REPORT INFORMATION
  Report Type: 
  Country: None (occurrence: None)
  Receive Date: 20040709
  Receipt Date: 20040709
  Transmission Date: 20050211
  Serious: Yes (Life-Threatening, Hospitalization)
  Sender: FDA-Public Use
  Company Number: None

PATIENT
  Age: 56 Year
  Sex: Male
  Weight: 77.1115 kg

DRUGS (1)
  1. 4-AMINOPYRIDINE [Suspect]
     Indication: DIABETIC NEUROPATHY
     Dosage: 2-3X/WK ORAL
     Route: 048
     Dates: start: 20040301, end: 20040501

REACTIONS (6)
  - ACCIDENTAL OVERDOSE [None]
  - ATRIAL FIBRILLATION [None]
  - CEREBRAL THROMBOSIS [None]
  - HYPOTHERMIA [None]
  - MEDICATION ERROR [None]
  - MENTAL STATUS CHANGES [None]
